FAERS Safety Report 8356785-5 (Version None)
Quarter: 2012Q2

REPORT INFORMATION
  Report Type: 
  Country: None (occurrence: None)
  Receive Date: 20120511
  Receipt Date: 20120511
  Transmission Date: 20120825
  Serious: No
  Sender: FDA-Public Use
  Company Number: None

PATIENT
  Sex: Female
  Weight: 95.2 kg

DRUGS (1)
  1. PRADAXA [Suspect]
     Indication: ATRIAL FIBRILLATION
     Dosage: 150 MG BID ORAL
     Route: 048

REACTIONS (4)
  - NECK PAIN [None]
  - CEREBROVASCULAR ACCIDENT [None]
  - SPINAL CORD COMPRESSION [None]
  - EXTRADURAL HAEMATOMA [None]
